FAERS Safety Report 6150940-0 (Version None)
Quarter: 2009Q2

REPORT INFORMATION
  Report Type: 
  Country: None (occurrence: None)
  Receive Date: 20090409
  Receipt Date: 20090330
  Transmission Date: 20091009
  Serious: Yes (Hospitalization)
  Sender: FDA-Public Use
  Company Number: DK-PFIZER INC-2009172407

PATIENT

DRUGS (1)
  1. CAVERJECT DUAL [Suspect]
     Indication: ERECTILE DYSFUNCTION
     Dosage: 15 UG, AS NEEDED
     Route: 017
     Dates: start: 20090105

REACTIONS (5)
  - PAIN IN EXTREMITY [None]
  - PENILE PAIN [None]
  - PERINEAL PAIN [None]
  - SCROTAL PAIN [None]
  - UNEVALUABLE EVENT [None]
